FAERS Safety Report 24155001 (Version 1)
Quarter: 2024Q3

REPORT INFORMATION
  Report Type: Spontaneous
  Country: US (occurrence: US)
  Receive Date: 20240731
  Receipt Date: 20240731
  Transmission Date: 20241017
  Serious: Yes (Other)
  Sender: Kilitch Healthcare
  Company Number: US-KHC-000061

PATIENT
  Sex: Female

DRUGS (1)
  1. POLYVINYL ALCOHOL [Suspect]
     Active Substance: POLYVINYL ALCOHOL
     Indication: Dry eye
     Dosage: 2 DROPS IN EACH EYE EVERY 4 TO 6 HOURS EACH DAY OR AS NEEDED
     Route: 065

REACTIONS (4)
  - Blindness [Not Recovered/Not Resolved]
  - Vision blurred [Not Recovered/Not Resolved]
  - Eye pruritus [Not Recovered/Not Resolved]
  - Recalled product administered [Unknown]

NARRATIVE: CASE EVENT DATE: 20231128
